FAERS Safety Report 16761258 (Version 1)
Quarter: 2019Q3

REPORT INFORMATION
  Report Type: Report from Study
  Country: US (occurrence: US)
  Receive Date: 20190830
  Receipt Date: 20190830
  Transmission Date: 20191005
  Serious: Yes (Other)
  Sender: FDA-Public Use
  Company Number: US-BAYER-2019-154699

PATIENT

DRUGS (1)
  1. OXYMETAZOLINE HYDROCHLORIDE. [Suspect]
     Active Substance: OXYMETAZOLINE HYDROCHLORIDE
     Indication: HAEMOSTASIS
     Dosage: 15 ML, ONCE, TEN OXYMETAZOLINE-SOAKED PLEDGETS (1.5 ML OF 0.05% SOLUTION EACH)
     Route: 045

REACTIONS (3)
  - Pulmonary oedema [None]
  - Hypertension [None]
  - Electrocardiogram ST-T segment abnormal [None]
